FAERS Safety Report 12660556 (Version 1)
Quarter: 2016Q3

REPORT INFORMATION
  Report Type: Spontaneous
  Country: US (occurrence: US)
  Receive Date: 20160817
  Receipt Date: 20160817
  Transmission Date: 20161109
  Serious: No
  Sender: FDA-Public Use
  Company Number: US-PRESTIGE BRANDS -1056436

PATIENT
  Age: 60 Year
  Sex: Female

DRUGS (1)
  1. TAGAMET [Suspect]
     Active Substance: CIMETIDINE
     Indication: DYSPEPSIA
     Route: 048
     Dates: start: 20150726

REACTIONS (4)
  - Drug ineffective [Not Recovered/Not Resolved]
  - Vomiting [Recovered/Resolved]
  - Dyspepsia [Recovered/Resolved]
  - Abdominal pain upper [Recovered/Resolved]

NARRATIVE: CASE EVENT DATE: 20150726
